FAERS Safety Report 9759798 (Version 2)
Quarter: 2013Q4

REPORT INFORMATION
  Report Type: Spontaneous
  Country: US (occurrence: US)
  Receive Date: 20131216
  Receipt Date: 20131216
  Transmission Date: 20140711
  Serious: No
  Sender: FDA-Public Use
  Company Number: US-GILEAD-2010-0029035

PATIENT
  Age: 62 Year
  Sex: Female
  Weight: 89.81 kg

DRUGS (19)
  1. LETAIRIS [Suspect]
     Indication: PULMONARY ARTERIAL HYPERTENSION
     Route: 048
     Dates: start: 20091022
  2. LETAIRIS [Suspect]
     Route: 048
  3. BACTRIM [Concomitant]
  4. DIGOXIN [Concomitant]
  5. CELEXA [Concomitant]
  6. POTASSIUM CHLORIDE [Concomitant]
  7. FUROSEMIDE [Concomitant]
  8. ALLOPURINOL [Concomitant]
  9. DICYCLOMINE [Concomitant]
  10. ALPRAZOLAM [Concomitant]
  11. DIPYRIDAMOLE [Concomitant]
  12. COREG [Concomitant]
  13. REVATIO [Concomitant]
  14. TIZANIDINE HCL [Concomitant]
  15. GLIPIZIDE-METFORMIN [Concomitant]
  16. OXYCODONE W/APAP [Concomitant]
  17. LEXAPRO [Concomitant]
  18. LEVOTHYROXINE [Concomitant]
  19. HYDROCODONE W/APAP [Concomitant]

REACTIONS (1)
  - Abdominal pain upper [Unknown]
